FAERS Safety Report 25031764 (Version 1)
Quarter: 2025Q1

REPORT INFORMATION
  Report Type: Spontaneous
  Country: US (occurrence: None)
  Receive Date: 20250302
  Receipt Date: 20250302
  Transmission Date: 20250409
  Serious: Yes (Hospitalization, Other)
  Sender: FDA-CTU
  Company Number: None

PATIENT
  Age: 35 Year
  Sex: Female
  Weight: 54 kg

DRUGS (10)
  1. 7-HYDROXYMITRAGYNINE [Suspect]
     Active Substance: 7-HYDROXYMITRAGYNINE
     Indication: Nutritional supplementation
     Route: 048
  2. CYMBALTA [Concomitant]
     Active Substance: DULOXETINE HYDROCHLORIDE
  3. ambilify [Concomitant]
  4. ARMOUR THYROID [Concomitant]
     Active Substance: THYROID, PORCINE
  5. THYROID [Concomitant]
     Active Substance: LEVOTHYROXINE\LIOTHYRONINE
  6. BIOTIN [Concomitant]
     Active Substance: BIOTIN
  7. ZINC [Concomitant]
     Active Substance: ZINC
  8. VITAMIN D [Concomitant]
     Active Substance: VITAMIN D NOS
  9. women^s multi daily vitamin [Concomitant]
  10. kratom vial [Concomitant]

REACTIONS (15)
  - Drug dependence [None]
  - Withdrawal syndrome [None]
  - Anxiety [None]
  - Myalgia [None]
  - Depression [None]
  - Drug dependence [None]
  - Affective disorder [None]
  - Insomnia [None]
  - Near death experience [None]
  - Product container seal issue [None]
  - Suspected product tampering [None]
  - Product communication issue [None]
  - Quality of life decreased [None]
  - Product use complaint [None]
  - Substance abuse [None]

NARRATIVE: CASE EVENT DATE: 20231002
